FAERS Safety Report 8263448-3 (Version None)
Quarter: 2012Q2

REPORT INFORMATION
  Report Type: 
  Country: None (occurrence: None)
  Receive Date: 20120405
  Receipt Date: 20120328
  Transmission Date: 20120825
  Serious: Yes (Hospitalization, Other)
  Sender: FDA-Public Use
  Company Number: JP-VERTEX PHARMACEUTICALS INC.-AE-2012-000005

PATIENT
  Age: 68 Year
  Sex: Male

DRUGS (7)
  1. TELAVIC (TELAPREVIR) [Suspect]
     Indication: HEPATITIS C
     Route: 048
     Dates: start: 20111221, end: 20111223
  2. VERAPAMIL HCL [Concomitant]
     Route: 048
     Dates: end: 20120223
  3. PEGINTERFERON ALFA-2B [Concomitant]
     Indication: HEPATITIS C
     Route: 051
     Dates: start: 20111221, end: 20111223
  4. RIBAVIRIN [Concomitant]
     Indication: HEPATITIS C
     Route: 048
     Dates: start: 20111221, end: 20111223
  5. ASPIRIN [Concomitant]
     Route: 048
     Dates: end: 20120223
  6. PREDNISOLONE [Concomitant]
     Route: 048
     Dates: end: 20120223
  7. FAMOTIDINE [Concomitant]
     Route: 048
     Dates: end: 20120223

REACTIONS (2)
  - MALAISE [None]
  - ACIDOSIS [None]
